FAERS Safety Report 6335826-0 (Version None)
Quarter: 2009Q3

REPORT INFORMATION
  Report Type: 
  Country: None (occurrence: None)
  Receive Date: 20090828
  Receipt Date: 20090814
  Transmission Date: 20100115
  Serious: Yes (Hospitalization)
  Sender: FDA-Public Use
  Company Number: 001483

PATIENT
  Sex: Female

DRUGS (10)
  1. PROSTAVASIN /00501501/ (PROSTAVASIN) [Suspect]
     Indication: PERIPHERAL ARTERIAL OCCLUSIVE DISEASE
     Dosage: (SINGLE DOSE:20 DAILY:40 INTRAVENOUS))
     Route: 042
     Dates: start: 20050930, end: 20051002
  2. REMERON [Concomitant]
  3. DILATREND [Concomitant]
  4. SPIRONOLACTONE [Concomitant]
  5. LORZAAR [Concomitant]
  6. ZOCOR [Concomitant]
  7. PLAVIX [Concomitant]
  8. CARBAMAZEPINE [Concomitant]
  9. INSULIN NOVORAPID [Concomitant]
  10. PROTAPHANE /01428201/ [Concomitant]

REACTIONS (1)
  - MYOCARDIAL INFARCTION [None]
